FAERS Safety Report 5006842-6 (Version None)
Quarter: 2006Q2

REPORT INFORMATION
  Report Type: 
  Country: None (occurrence: None)
  Receive Date: 20060516
  Receipt Date: 20060501
  Transmission Date: 20061013
  Serious: Yes (Disabling)
  Sender: FDA-Public Use
  Company Number: 385470

PATIENT
  Age: 22 Year
  Sex: Female
  Weight: 45.4 kg

DRUGS (1)
  1. ACCUTANE [Suspect]
     Indication: ACNE
     Dosage: ORAL
     Route: 048
     Dates: start: 19980515, end: 19981015

REACTIONS (65)
  - ABDOMINAL PAIN [None]
  - ABDOMINAL PAIN UPPER [None]
  - ADJUSTMENT DISORDER WITH MIXED ANXIETY AND DEPRESSED MOOD [None]
  - ALOPECIA [None]
  - ANXIETY [None]
  - ARTHRALGIA [None]
  - ARTHRITIS [None]
  - AUTOIMMUNE DISORDER [None]
  - BLOOD ALBUMIN DECREASED [None]
  - BLOOD CALCIUM DECREASED [None]
  - BONE DENSITY DECREASED [None]
  - CHRONIC FATIGUE SYNDROME [None]
  - COLITIS [None]
  - COLITIS ULCERATIVE [None]
  - COUGH [None]
  - CROHN'S DISEASE [None]
  - CUSHINGOID [None]
  - DEHYDRATION [None]
  - DEPRESSION [None]
  - DIZZINESS [None]
  - DRUG HYPERSENSITIVITY [None]
  - DYSPEPSIA [None]
  - ENTERITIS [None]
  - ENTERITIS INFECTIOUS [None]
  - FALL [None]
  - FOLLICULITIS [None]
  - GASTROINTESTINAL DISORDER [None]
  - HAEMATURIA [None]
  - HAEMOGLOBIN DECREASED [None]
  - HEADACHE [None]
  - HYPOKALAEMIA [None]
  - INFLAMMATORY BOWEL DISEASE [None]
  - INSOMNIA [None]
  - JOINT INJURY [None]
  - LEUKOCYTOSIS [None]
  - LUPUS-LIKE SYNDROME [None]
  - MERYCISM [None]
  - MOOD ALTERED [None]
  - MOUTH ULCERATION [None]
  - MULTI-ORGAN DISORDER [None]
  - MUSCLE INJURY [None]
  - MUSCLE SPASMS [None]
  - MYALGIA [None]
  - MYOCARDITIS [None]
  - NIGHT BLINDNESS [None]
  - OEDEMA PERIPHERAL [None]
  - OSTEOPENIA [None]
  - OSTEOPOROSIS [None]
  - OTITIS EXTERNA [None]
  - PERICARDIAL EFFUSION [None]
  - PERICARDITIS [None]
  - PHARYNGOLARYNGEAL ABSCESS [None]
  - PLATELET COUNT INCREASED [None]
  - PROTEIN TOTAL DECREASED [None]
  - PROTEINURIA [None]
  - PSORIASIS [None]
  - PYREXIA [None]
  - RASH [None]
  - RED BLOOD CELL COUNT DECREASED [None]
  - RENAL CYST [None]
  - SEBORRHOEA [None]
  - SMALL INTESTINAL OBSTRUCTION [None]
  - SOMNOLENCE [None]
  - STOMATITIS [None]
  - SYSTEMIC LUPUS ERYTHEMATOSUS [None]
